FAERS Safety Report 4341595-6 (Version None)
Quarter: 2004Q2

REPORT INFORMATION
  Report Type: 
  Country: None (occurrence: None)
  Receive Date: 20040419
  Receipt Date: 20040419
  Transmission Date: 20050107
  Serious: Yes (Life-Threatening)
  Sender: FDA-Public Use
  Company Number: None

PATIENT
  Age: 16 Year
  Sex: Male
  Weight: 65.7716 kg

DRUGS (2)
  1. ZOLOFT [Suspect]
     Indication: ANXIETY
     Dosage: 100 MG QD ORAL
     Route: 048
     Dates: start: 20031220, end: 20040404
  2. ZOLOFT [Suspect]
     Indication: DEPRESSION
     Dosage: 100 MG QD ORAL
     Route: 048
     Dates: start: 20031220, end: 20040404

REACTIONS (7)
  - ABNORMAL BEHAVIOUR [None]
  - AGGRESSION [None]
  - AGITATION [None]
  - DEPERSONALISATION [None]
  - DEPRESSION [None]
  - HOSTILITY [None]
  - SUICIDAL IDEATION [None]
